FAERS Safety Report 10222952 (Version 1)
Quarter: 2014Q2

REPORT INFORMATION
  Report Type: Report from Study
  Country: BR (occurrence: BR)
  Receive Date: 20140607
  Receipt Date: 20140607
  Transmission Date: 20141212
  Serious: Yes (Other)
  Sender: FDA-Public Use
  Company Number: PHHY2014BR066991

PATIENT
  Age: 62 Year
  Sex: Female
  Weight: 66 kg

DRUGS (5)
  1. GALVUS MET [Suspect]
     Indication: DIABETES MELLITUS
     Dosage: 1 DF, (850 MG METF, 50 MG VILD) DAILY
     Dates: start: 20140408
  2. METFORMIN [Suspect]
     Indication: DIABETES MELLITUS
     Dosage: UNK UKN, UNK
  3. METFORMIN [Suspect]
     Dosage: 3 DF, DAILY
     Dates: end: 20140327
  4. DAONIL [Suspect]
     Indication: DIABETES MELLITUS
     Dosage: 2 DF,DAILY
     Dates: end: 20140427
  5. ANGIPRESS CD [Suspect]
     Indication: HYPERTENSION
     Dosage: 1 DF, (ATEN 50 MG, CHLO 12.5 MG) DAILY
     Dates: start: 2005

REACTIONS (5)
  - Tooth infection [Unknown]
  - Cyst [Unknown]
  - Tooth fracture [Unknown]
  - Hyperglycaemia [Unknown]
  - Diarrhoea [Unknown]
